FAERS Safety Report 8156863-X (Version None)
Quarter: 2012Q1

REPORT INFORMATION
  Report Type: 
  Country: None (occurrence: None)
  Receive Date: 20120222
  Receipt Date: 20120219
  Transmission Date: 20120608
  Serious: Yes (Other)
  Sender: FDA-Public Use
  Company Number: US-GLAXOSMITHKLINE-A0966760A

PATIENT
  Age: 15 Year
  Sex: Female

DRUGS (1)
  1. LAMICTAL XR [Suspect]
     Indication: EPILEPSY
     Route: 065
     Dates: start: 20120129

REACTIONS (3)
  - HYPOGLYCAEMIA [None]
  - HYPOGLYCAEMIC SEIZURE [None]
  - CONVULSION [None]
